FAERS Safety Report 21392318 (Version 2)
Quarter: 2022Q4

REPORT INFORMATION
  Report Type: Spontaneous
  Country: DE (occurrence: DE)
  Receive Date: 20220929
  Receipt Date: 20221007
  Transmission Date: 20230112
  Serious: Yes (Other)
  Sender: FDA-Public Use
  Company Number: DE-ANIPHARMA-2022-DE-000154

PATIENT
  Sex: Male

DRUGS (8)
  1. CANDESARTAN CILEXETIL [Suspect]
     Active Substance: CANDESARTAN CILEXETIL
     Indication: Coronary artery disease
     Dosage: DAILY INTAKE
  2. DILTIAZEM [Suspect]
     Active Substance: DILTIAZEM
     Dosage: DAILY INTAKE
     Route: 065
  3. ROSUVASTATIN [Concomitant]
     Active Substance: ROSUVASTATIN
     Dosage: DAILY INTAKE
     Route: 065
  4. XARELTO [Concomitant]
     Active Substance: RIVAROXABAN
     Dosage: DAILY INTAKE
     Route: 065
  5. ASPIRIN [Concomitant]
     Active Substance: ASPIRIN
     Dosage: DAILY INTAKE
     Route: 065
  6. CELECOXIB [Suspect]
     Active Substance: CELECOXIB
     Dosage: IF NEEDED, 2 TO 3 TABLETS OF CELECOXIB OVER 2 DAYS IN A MONTH / 200 MG DAILY
     Route: 065
  7. MOLSIDOMINE [Suspect]
     Active Substance: MOLSIDOMINE
     Dosage: DAILY INTAKE
     Route: 065
  8. RANEXA [Suspect]
     Active Substance: RANOLAZINE
     Dosage: DAILY INTAKE
     Route: 065

REACTIONS (3)
  - Drug interaction [Unknown]
  - Chest pain [Recovered/Resolved]
  - Angina pectoris [Recovered/Resolved]
